FAERS Safety Report 19604290 (Version 1)
Quarter: 2021Q3

REPORT INFORMATION
  Report Type: Spontaneous
  Country: FR (occurrence: FR)
  Receive Date: 20210723
  Receipt Date: 20210723
  Transmission Date: 20211014
  Serious: Yes (Other)
  Sender: FDA-Public Use
  Company Number: FR-PFIZER INC-2021867031

PATIENT
  Age: 67 Year
  Sex: Male

DRUGS (4)
  1. COLISTIMETHATE SODIUM. [Suspect]
     Active Substance: COLISTIMETHATE SODIUM
     Indication: DEVICE RELATED INFECTION
     Dosage: 4.5 MIU, 2X/DAY
     Route: 042
  2. TIGECYCLINE. [Suspect]
     Active Substance: TIGECYCLINE
     Indication: ENTEROBACTER INFECTION
  3. COLISTIMETHATE SODIUM. [Suspect]
     Active Substance: COLISTIMETHATE SODIUM
     Indication: ENTEROBACTER INFECTION
  4. TIGECYCLINE. [Suspect]
     Active Substance: TIGECYCLINE
     Indication: DEVICE RELATED INFECTION
     Dosage: 100 MG, 2X/DAY
     Route: 042

REACTIONS (3)
  - Decreased appetite [Recovered/Resolved]
  - Renal failure [Recovered/Resolved]
  - Nausea [Recovered/Resolved]
